FAERS Safety Report 4732735-5 (Version None)
Quarter: 2005Q3

REPORT INFORMATION
  Report Type: 
  Country: None (occurrence: None)
  Receive Date: 20050801
  Receipt Date: 20050728
  Transmission Date: 20060218
  Serious: Yes (Other)
  Sender: FDA-Public Use
  Company Number: 163-20785-04120545

PATIENT
  Sex: Male

DRUGS (1)
  1. THALOMID [Suspect]
     Indication: SKIN DISORDER
     Dosage: ORAL
     Route: 048

REACTIONS (6)
  - ABDOMINAL WALL ANOMALY [None]
  - CAESAREAN SECTION [None]
  - DRUG EXPOSURE DURING PREGNANCY [None]
  - FOETAL DISORDER [None]
  - LIMB MALFORMATION [None]
  - PREGNANCY OF PARTNER [None]
